FAERS Safety Report 11460685 (Version 2)
Quarter: 2015Q3

REPORT INFORMATION
  Report Type: Spontaneous
  Country: MX (occurrence: MX)
  Receive Date: 20150904
  Receipt Date: 20150908
  Transmission Date: 20151125
  Serious: Yes (Life-Threatening, Hospitalization, Other)
  Sender: FDA-Public Use
  Company Number: MX-BRISTOL-MYERS SQUIBB COMPANY-BMS-2015-055997

PATIENT
  Age: 53 Year
  Sex: Male
  Weight: 83 kg

DRUGS (3)
  1. ERBITUX [Suspect]
     Active Substance: CETUXIMAB
     Indication: ANAL CANCER
     Dosage: 760 MG, Q3WK
     Route: 042
     Dates: start: 20150717, end: 20150717
  2. CAPECITABINE. [Concomitant]
     Active Substance: CAPECITABINE
     Indication: ANAL CANCER
     Dosage: 1 DF, UNK
     Route: 048
     Dates: start: 20150619, end: 20150717
  3. OXALIPLATIN. [Concomitant]
     Active Substance: OXALIPLATIN
     Indication: ANAL CANCER
     Dosage: 130 MG/KG, UNK
     Route: 042
     Dates: start: 20150619, end: 20150717

REACTIONS (7)
  - Myocardial infarction [Recovered/Resolved]
  - Hypoperfusion [Recovered/Resolved]
  - Nervous system disorder [Recovered/Resolved]
  - Hypotension [Recovered/Resolved]
  - Off label use [Unknown]
  - Bradypnoea [Recovered/Resolved]
  - Cardio-respiratory arrest [Recovered/Resolved]

NARRATIVE: CASE EVENT DATE: 20150717
